FAERS Safety Report 16676475 (Version 1)
Quarter: 2019Q3

REPORT INFORMATION
  Report Type: Spontaneous
  Country: NZ (occurrence: NZ)
  Receive Date: 20190807
  Receipt Date: 20190807
  Transmission Date: 20191004
  Serious: Yes (Hospitalization, Other)
  Sender: FDA-Public Use
  Company Number: NZ-ABBVIE-19K-118-2877253-00

PATIENT
  Age: 54 Year
  Sex: Male

DRUGS (5)
  1. HUMIRA [Suspect]
     Active Substance: ADALIMUMAB
     Indication: PRODUCT USED FOR UNKNOWN INDICATION
     Route: 058
     Dates: start: 2014
  2. HUMIRA [Suspect]
     Active Substance: ADALIMUMAB
     Route: 058
  3. QUINIDINE [Suspect]
     Active Substance: QUINIDINE
     Indication: PRODUCT USED FOR UNKNOWN INDICATION
     Route: 065
  4. QUINIDINE [Suspect]
     Active Substance: QUINIDINE
     Route: 065
     Dates: start: 2017
  5. PLAQUENIL [Concomitant]
     Active Substance: HYDROXYCHLOROQUINE SULFATE
     Indication: PRODUCT USED FOR UNKNOWN INDICATION

REACTIONS (10)
  - Implantable defibrillator insertion [Unknown]
  - Road traffic accident [Unknown]
  - Adverse drug reaction [Unknown]
  - Systemic lupus erythematosus rash [Unknown]
  - Perivascular dermatitis [Unknown]
  - Brugada syndrome [Unknown]
  - Laboratory test [Unknown]
  - Lichenoid keratosis [Unknown]
  - Rash [Unknown]
  - Cardiac arrest [Unknown]

NARRATIVE: CASE EVENT DATE: 2016
